FAERS Safety Report 5273097-7 (Version None)
Quarter: 2007Q1

REPORT INFORMATION
  Report Type: 
  Country: None (occurrence: None)
  Receive Date: 20070322
  Receipt Date: 20070201
  Transmission Date: 20070707
  Serious: Yes (Hospitalization, Other)
  Sender: FDA-Public Use
  Company Number: US-PFIZER INC-2007008920

PATIENT
  Sex: Male

DRUGS (2)
  1. LYRICA [Suspect]
  2. LIPITOR [Concomitant]

REACTIONS (3)
  - FALL [None]
  - GUILLAIN-BARRE SYNDROME [None]
  - MUSCULAR WEAKNESS [None]
